FAERS Safety Report 9884971 (Version 2)
Quarter: 2014Q1

REPORT INFORMATION
  Report Type: Spontaneous
  Country: JP (occurrence: JP)
  Receive Date: 20140210
  Receipt Date: 20140220
  Transmission Date: 20141002
  Serious: Yes (Life-Threatening, Hospitalization)
  Sender: FDA-Public Use
  Company Number: JP-JNJFOC-20140204184

PATIENT
  Age: 60 Year
  Sex: Male
  Weight: 63 kg

DRUGS (6)
  1. XARELTO [Suspect]
     Indication: CEREBROVASCULAR ACCIDENT PROPHYLAXIS
     Route: 048
     Dates: start: 20140103, end: 20140129
  2. DIGOXIN [Concomitant]
     Route: 048
     Dates: end: 20140129
  3. LASIX [Concomitant]
     Route: 048
  4. ENALAPRIL [Concomitant]
     Route: 048
  5. HERBESSER R [Concomitant]
     Route: 048
  6. EDARAVONE [Concomitant]
     Route: 042
     Dates: start: 20131230, end: 20140106

REACTIONS (1)
  - Acute interstitial pneumonitis [Not Recovered/Not Resolved]
